FAERS Safety Report 7910748 (Version 5)
Quarter: 2014Q1

REPORT INFORMATION
  Report Type: Report from Study
  Country: US (occurrence: US)
  Receive Date: 20110422
  Receipt Date: 20140317
  Transmission Date: 20141002
  Serious: Yes (Death, Hospitalization)
  Sender: FDA-Public Use
  Company Number: US-BRISTOL-MYERS SQUIBB COMPANY-15385818

PATIENT
  Age: 26 Year
  Sex: Female

DRUGS (9)
  1. IPILIMUMAB [Suspect]
     Indication: MALIGNANT MELANOMA
     Route: 042
     Dates: start: 20100518, end: 20101103
  2. ZOLPIDEM [Concomitant]
     Dosage: CR
  3. ZOFRAN [Concomitant]
     Route: 048
  4. LORAZEPAM [Concomitant]
     Dosage: 1-2 TABS AT BEDTIME
     Route: 048
  5. VALACYCLOVIR [Concomitant]
     Route: 048
  6. GABAPENTIN [Concomitant]
     Route: 048
  7. LIDODERM [Concomitant]
     Dosage: GKM 12JUN2010
     Route: 061
  8. FENTANYL [Concomitant]
     Dosage: GKM 12JUN2010
     Route: 061
  9. LOVENOX [Concomitant]
     Dosage: GKM 12JUN10:GKM 12JUN10
     Route: 058

REACTIONS (6)
  - Malignant neoplasm progression [Fatal]
  - Pyrexia [Recovered/Resolved]
  - Pain in extremity [Recovered/Resolved with Sequelae]
  - Rash [Recovered/Resolved]
  - Erythema [Recovered/Resolved with Sequelae]
  - Anaemia [Recovered/Resolved]
